FAERS Safety Report 8575536-2 (Version None)
Quarter: 2012Q3

REPORT INFORMATION
  Report Type: 
  Country: None (occurrence: None)
  Receive Date: 20120807
  Receipt Date: 20120723
  Transmission Date: 20120928
  Serious: Yes (Hospitalization)
  Sender: FDA-Public Use
  Company Number: FR-AMGEN-FRASP2012041092

PATIENT
  Age: 57 Year
  Sex: Female

DRUGS (5)
  1. NAPROXEN [Suspect]
     Dosage: 550 MG DAILY INTERMITTENTLY
     Route: 048
     Dates: start: 20020101, end: 20120525
  2. ENBREL [Suspect]
     Indication: RHEUMATOID ARTHRITIS
     Dosage: 50 MG, WEEKLY
     Route: 058
     Dates: start: 20100928, end: 20120401
  3. METHOTREXATE [Suspect]
     Indication: RHEUMATOID ARTHRITIS
     Dosage: 15 MG, WEEKLY
     Dates: start: 20120401, end: 20120528
  4. FOLIC ACID [Suspect]
     Dosage: UNK
     Route: 048
     Dates: start: 20020101, end: 20120525
  5. LAMALINE                           /00764901/ [Suspect]
     Dosage: UNK
     Route: 048
     Dates: start: 20120517, end: 20120525

REACTIONS (7)
  - VAGINAL ULCERATION [None]
  - RENAL FAILURE [None]
  - GENITAL ULCERATION [None]
  - INFLAMMATION [None]
  - NEUTROPENIA [None]
  - C-REACTIVE PROTEIN INCREASED [None]
  - VULVAL ULCERATION [None]
